FAERS Safety Report 16094201 (Version 2)
Quarter: 2019Q3

REPORT INFORMATION
  Report Type: Report from Study
  Country: US (occurrence: US)
  Receive Date: 20190320
  Receipt Date: 20190712
  Transmission Date: 20191004
  Serious: Yes (Hospitalization)
  Sender: FDA-Public Use
  Company Number: US-ROCHE-1849005

PATIENT
  Age: 41 Year
  Sex: Female
  Weight: 86.26 kg

DRUGS (14)
  1. BEVACIZUMAB. [Suspect]
     Active Substance: BEVACIZUMAB
     Indication: COLORECTAL CANCER METASTATIC
     Dosage: 11/OCT/2016 RECENT DOSE
     Route: 042
     Dates: start: 20150408
  2. MORPHINE [Concomitant]
     Active Substance: MORPHINE
     Route: 065
     Dates: start: 20161019
  3. DIAZEPAM. [Concomitant]
     Active Substance: DIAZEPAM
  4. DOCUSATE SODIUM. [Concomitant]
     Active Substance: DOCUSATE SODIUM
  5. DRONABINOL. [Concomitant]
     Active Substance: DRONABINOL
  6. METHYLPHENIDATE. [Concomitant]
     Active Substance: METHYLPHENIDATE
  7. METHOTREXATE. [Concomitant]
     Active Substance: METHOTREXATE
     Route: 065
     Dates: start: 20161020
  8. FOLINIC ACID [Suspect]
     Active Substance: LEUCOVORIN
     Indication: COLORECTAL CANCER METASTATIC
     Dosage: 11/OCT/2016 RECENT DOSE
     Route: 042
     Dates: start: 20150408
  9. SENNA [SENNA ALEXANDRINA] [Concomitant]
     Active Substance: SENNA LEAF
  10. HYDROCORTISONE. [Concomitant]
     Active Substance: HYDROCORTISONE
     Route: 065
     Dates: start: 20161020
  11. OXALIPLATIN. [Suspect]
     Active Substance: OXALIPLATIN
     Indication: COLORECTAL CANCER METASTATIC
     Dosage: 11/OCT/2016 RECENT DOSE
     Route: 042
     Dates: start: 20150408
  12. ONDANSETRON [Concomitant]
     Active Substance: ONDANSETRON
     Route: 065
     Dates: start: 20161020
  13. FLUOROURACIL. [Suspect]
     Active Substance: FLUOROURACIL
     Indication: COLORECTAL CANCER METASTATIC
     Dosage: 11/OCT/2016 RECENT DOSE
     Route: 042
     Dates: start: 20150408
  14. ALBUTEROL [SALBUTAMOL] [Concomitant]
     Active Substance: ALBUTEROL

REACTIONS (2)
  - Vascular device infection [Unknown]
  - Pyrexia [Unknown]

NARRATIVE: CASE EVENT DATE: 20161013
